FAERS Safety Report 7542384-1 (Version None)
Quarter: 2011Q2

REPORT INFORMATION
  Report Type: 
  Country: None (occurrence: None)
  Receive Date: 20110613
  Receipt Date: 20100514
  Transmission Date: 20111010
  Serious: No
  Sender: FDA-Public Use
  Company Number: US-TEVA-235169USA

PATIENT
  Sex: Female
  Weight: 135.29 kg

DRUGS (16)
  1. LORATADINE [Concomitant]
  2. PLANTAGO OVATA [Concomitant]
  3. AZILECT [Suspect]
     Indication: PARKINSON'S DISEASE
     Dosage: 1 MILLIGRAM;
     Route: 050
     Dates: start: 20090226
  4. PIRBUTEROL ACETATE [Concomitant]
  5. ROPINIROLE HYDROCHLORIDE [Concomitant]
  6. AZILECT [Suspect]
     Dosage: .5 MILLIGRAM;
     Dates: start: 20100409
  7. CLONAZEPAM [Concomitant]
  8. ERGOCALCIFEROL [Concomitant]
  9. MULTI-VITAMIN [Concomitant]
  10. FUROSEMIDE [Concomitant]
  11. AMANTADINE HCL [Concomitant]
  12. ESCITALOPRAM OXALATE [Concomitant]
  13. LISINOPRIL [Concomitant]
  14. FERROUS SULFATE TAB [Concomitant]
  15. SINEMET [Concomitant]
  16. ASCORBIC ACID [Concomitant]

REACTIONS (1)
  - ACROCHORDON [None]
